FAERS Safety Report 17111506 (Version 1)
Quarter: 2019Q4

REPORT INFORMATION
  Report Type: Report from Study
  Country: AT (occurrence: AT)
  Receive Date: 20191204
  Receipt Date: 20191204
  Transmission Date: 20200122
  Serious: Yes (Hospitalization, Other)
  Sender: FDA-Public Use
  Company Number: PHHY2019AT119407

PATIENT
  Sex: Female
  Weight: 49 kg

DRUGS (4)
  1. RIBOCICLIB. [Suspect]
     Active Substance: RIBOCICLIB
     Indication: BREAST CANCER METASTATIC
     Dosage: 600 MG, UNK
     Route: 065
     Dates: start: 20190420
  2. RIBOCICLIB. [Suspect]
     Active Substance: RIBOCICLIB
     Dosage: 600 MG, UNK
     Route: 065
     Dates: start: 20190517, end: 20190518
  3. RIBOCICLIB. [Suspect]
     Active Substance: RIBOCICLIB
     Dosage: 400 MG
     Route: 065
     Dates: start: 20190829
  4. RIBOCICLIB. [Suspect]
     Active Substance: RIBOCICLIB
     Dosage: 400 MG
     Route: 065
     Dates: start: 2019, end: 20190907

REACTIONS (7)
  - Neutrophil count decreased [Recovered/Resolved]
  - Ascites [Recovering/Resolving]
  - Dry skin [Not Recovered/Not Resolved]
  - White blood cell count decreased [Unknown]
  - Liver function test increased [Not Recovered/Not Resolved]
  - Portal hypertension [Unknown]
  - Neutrophil count decreased [Not Recovered/Not Resolved]

NARRATIVE: CASE EVENT DATE: 20190517
